FAERS Safety Report 8478605-0 (Version None)
Quarter: 2012Q2

REPORT INFORMATION
  Report Type: 
  Country: None (occurrence: None)
  Receive Date: 20120629
  Receipt Date: 20120628
  Transmission Date: 20120825
  Serious: Yes (Death, Hospitalization, Other)
  Sender: FDA-Public Use
  Company Number: PHHY2011SE63059

PATIENT
  Age: 25 Year
  Sex: Female

DRUGS (3)
  1. ZOPICLONE [Suspect]
  2. VENLAFAXINE [Suspect]
  3. HERBAL BLEND KRYPTON [Suspect]

REACTIONS (4)
  - LOSS OF CONSCIOUSNESS [None]
  - CARDIAC ARREST [None]
  - TOXICITY TO VARIOUS AGENTS [None]
  - PULMONARY CONGESTION [None]
